FAERS Safety Report 5557713-8 (Version None)
Quarter: 2007Q4

REPORT INFORMATION
  Report Type: 
  Country: None (occurrence: None)
  Receive Date: 20071214
  Receipt Date: 20071214
  Transmission Date: 20080405
  Serious: Yes (Hospitalization)
  Sender: FDA-Public Use
  Company Number: PHHO2006AT04189

PATIENT
  Age: 61 Year
  Sex: Female
  Weight: 68.5 kg

DRUGS (4)
  1. CALCIUM CARBONATE [Concomitant]
  2. VITAMIN D [Concomitant]
  3. ZOLEDRONIC ACID [Suspect]
     Indication: OSTEOPOROTIC FRACTURE
     Dosage: DOUBLE-BLIND
     Route: 042
     Dates: start: 20050223
  4. ZOLEDRONIC ACID [Suspect]
     Dosage: 5MG, ONCE YEARLY

REACTIONS (4)
  - ARTHRALGIA [None]
  - DISEASE PROGRESSION [None]
  - HIP SURGERY [None]
  - NECROSIS [None]
